FAERS Safety Report 8391632-7 (Version None)
Quarter: 2012Q2

REPORT INFORMATION
  Report Type: 
  Country: None (occurrence: None)
  Receive Date: 20120529
  Receipt Date: 20120524
  Transmission Date: 20120825
  Serious: Yes (Hospitalization)
  Sender: FDA-Public Use
  Company Number: US-AMGEN-USASP2012032774

PATIENT
  Age: 56 Year
  Sex: Female

DRUGS (1)
  1. ENBREL [Suspect]
     Indication: RHEUMATOID ARTHRITIS
     Dosage: 50 MG, QWK
     Dates: start: 20110601

REACTIONS (8)
  - BREAST INFECTION [None]
  - WOUND CLOSURE [None]
  - BREAST PAIN [None]
  - BREAST OEDEMA [None]
  - IMPAIRED HEALING [None]
  - ERYTHEMA [None]
  - BREAST CANCER [None]
  - POSTOPERATIVE WOUND INFECTION [None]
